FAERS Safety Report 5251410-4 (Version None)
Quarter: 2007Q1

REPORT INFORMATION
  Report Type: 
  Country: None (occurrence: None)
  Receive Date: 20070228
  Receipt Date: 20060531
  Transmission Date: 20070707
  Serious: No
  Sender: FDA-Public Use
  Company Number: US-GLAXOSMITHKLINE-A0604510A

PATIENT
  Age: 37 Year
  Sex: Female
  Weight: 72.7 kg

DRUGS (5)
  1. LAMICTAL [Suspect]
     Indication: BIPOLAR DISORDER
     Dosage: 25MG PER DAY
     Route: 048
     Dates: start: 20060201, end: 20060505
  2. VITAMIN AND MINERAL PRENATAL SUPPLEMENT W/ FOLIC ACID CAP [Concomitant]
  3. NASACORT [Concomitant]
  4. AMBIEN [Concomitant]
  5. IMITREX [Concomitant]

REACTIONS (1)
  - RASH [None]
